FAERS Safety Report 5503805-9 (Version None)
Quarter: 2007Q4

REPORT INFORMATION
  Report Type: 
  Country: None (occurrence: None)
  Receive Date: 20071101
  Receipt Date: 20071024
  Transmission Date: 20080405
  Serious: Yes (Other)
  Sender: FDA-Public Use
  Company Number: PHBS2007JP17890

PATIENT
  Age: 38 Year

DRUGS (5)
  1. PHENYTOIN [Concomitant]
  2. PHENOBARBITAL TAB [Concomitant]
  3. CLOBAZAM [Concomitant]
  4. TEGRETOL [Suspect]
     Indication: TEMPORAL LOBE EPILEPSY
     Dosage: 900 MG/DAY
     Route: 048
  5. TEGRETOL [Suspect]
     Dosage: 100 MG/DAY
     Route: 048

REACTIONS (1)
  - BREAST CANCER [None]
